FAERS Safety Report 23425107 (Version 1)
Quarter: 2024Q1

REPORT INFORMATION
  Report Type: Report from Study
  Country: US (occurrence: US)
  Receive Date: 20240121
  Receipt Date: 20240121
  Transmission Date: 20240410
  Serious: Yes (Other)
  Sender: FDA-Public Use
  Company Number: US-ABBVIE-5467739

PATIENT
  Age: 57 Year
  Sex: Female

DRUGS (2)
  1. HUMIRA [Suspect]
     Active Substance: ADALIMUMAB
     Indication: Uveitis
     Route: 058
     Dates: start: 20220801, end: 202309
  2. HUMIRA [Suspect]
     Active Substance: ADALIMUMAB
     Route: 058
     Dates: start: 20190603

REACTIONS (9)
  - Rotator cuff repair [Unknown]
  - Arthralgia [Unknown]
  - Psoriasis [Unknown]
  - Vision blurred [Unknown]
  - Eye disorder [Unknown]
  - Bone disorder [Unknown]
  - Joint lock [Unknown]
  - Fibromyalgia [Unknown]
  - Rotator cuff syndrome [Unknown]

NARRATIVE: CASE EVENT DATE: 20230816
